FAERS Safety Report 11668140 (Version 1)
Quarter: 2015Q4

REPORT INFORMATION
  Report Type: Spontaneous
  Country: US (occurrence: None)
  Receive Date: 20151027
  Receipt Date: 20151027
  Transmission Date: 20160304
  Serious: Yes (Other)
  Sender: FDA-Public Use
  Company Number: US-MDT-ADR-2015-02033

PATIENT
  Age: 59 Year
  Sex: Male

DRUGS (2)
  1. DILAUDID [Suspect]
     Active Substance: HYDROMORPHONE HYDROCHLORIDE
     Indication: PAIN
     Dosage: 4.324 MG/DAY
  2. COMPOUNDED BACLOFEN INTRATHECAL 2000 MCG/ML [Suspect]
     Active Substance: BACLOFEN
     Indication: PAIN
     Dosage: 43.24 MCG/DAY

REACTIONS (8)
  - Incorrect route of drug administration [None]
  - Nausea [None]
  - Accidental overdose [None]
  - Device breakage [None]
  - Pocket erosion [None]
  - Drug withdrawal syndrome [None]
  - Pain [None]
  - Dizziness [None]
